FAERS Safety Report 5006533-1 (Version None)
Quarter: 2006Q2

REPORT INFORMATION
  Report Type: 
  Country: None (occurrence: None)
  Receive Date: 20060519
  Receipt Date: 20060227
  Transmission Date: 20061013
  Serious: Yes (Other)
  Sender: FDA-Public Use
  Company Number: FR-SANOFI-SYNTHELABO-A02200600543

PATIENT
  Sex: Male
  Weight: 83 kg

DRUGS (3)
  1. XATRAL [Suspect]
     Indication: PROSTATIC ADENOMA
     Route: 048
     Dates: start: 20020501, end: 20060227
  2. XATRAL [Suspect]
     Indication: URINARY RETENTION
     Route: 048
     Dates: start: 20020501, end: 20060227
  3. LEVOTHYROX [Concomitant]
     Route: 048
     Dates: start: 19910101

REACTIONS (4)
  - HEPATOCELLULAR DAMAGE [None]
  - JAUNDICE [None]
  - TRANSAMINASES INCREASED [None]
  - URINE COLOUR ABNORMAL [None]
